FAERS Safety Report 9223722 (Version 1)
Quarter: 2013Q2

REPORT INFORMATION
  Report Type: Spontaneous
  Country: CA (occurrence: US)
  Receive Date: 20130410
  Receipt Date: 20130410
  Transmission Date: 20140414
  Serious: Yes (Other)
  Sender: FDA-Public Use
  Company Number: CHPA2013US005804

PATIENT
  Age: 80 Year
  Sex: Female

DRUGS (3)
  1. GAS-X EXTSTR CHEW TABS PEPPERMINT CREME [Suspect]
     Indication: FLATULENCE
     Dosage: 125 MG, UNK
     Route: 048
     Dates: start: 2003
  2. METFORMIN [Concomitant]
  3. ANTIHYPERTENSIVES [Concomitant]
     Indication: BLOOD PRESSURE

REACTIONS (2)
  - Hernia [Not Recovered/Not Resolved]
  - Choking [Unknown]
